FAERS Safety Report 5490857-8 (Version None)
Quarter: 2007Q4

REPORT INFORMATION
  Report Type: 
  Country: None (occurrence: None)
  Receive Date: 20071019
  Receipt Date: 20071010
  Transmission Date: 20080405
  Serious: Yes (Life-Threatening, Other)
  Sender: FDA-Public Use
  Company Number: GB-PURDUE-GBR_2007_0003336

PATIENT
  Age: 36 Year
  Sex: Female
  Weight: 47 kg

DRUGS (3)
  1. MORPHINE SULFATE [Suspect]
     Indication: LABOUR PAIN
     Dosage: 10 MG, SINGLE
     Route: 030
  2. MAGNESIUM SULFATE [Suspect]
     Indication: PROTEINURIA
     Dosage: 5 GRAM, UNK
     Route: 065
  3. LABETALOL [Concomitant]
     Indication: HYPERTENSION
     Route: 065

REACTIONS (4)
  - MIOSIS [None]
  - RESPIRATORY DEPRESSION [None]
  - SOMNOLENCE [None]
  - UNRESPONSIVE TO STIMULI [None]
